FAERS Safety Report 19123775 (Version 2)
Quarter: 2021Q2

REPORT INFORMATION
  Report Type: Spontaneous
  Country: IT (occurrence: IT)
  Receive Date: 20210412
  Receipt Date: 20210415
  Transmission Date: 20210717
  Serious: Yes (Other)
  Sender: FDA-Public Use
  Company Number: IT-ALLERGAN-2114120US

PATIENT
  Sex: Male

DRUGS (6)
  1. DIBASE [Concomitant]
     Active Substance: CHOLECALCIFEROL
  2. VITAMIN B NOS [Concomitant]
     Active Substance: VITAMIN B
  3. FOLIC ACID. [Concomitant]
     Active Substance: FOLIC ACID
  4. COUMADINE [Concomitant]
     Active Substance: WARFARIN SODIUM
     Indication: CARDIAC FIBRILLATION
     Dosage: 5 MG
  5. FOSFOMYCIN TROMETHAMINE ? BP [Suspect]
     Active Substance: FOSFOMYCIN TROMETHAMINE
     Indication: PROSTATIC ADENOMA
     Dosage: 1 DF, QD
     Route: 065
     Dates: start: 20210325, end: 20210326
  6. OMEX CO Q10 [Concomitant]
     Dosage: 0.4 MG

REACTIONS (5)
  - Headache [Not Recovered/Not Resolved]
  - Vertigo [Recovered/Resolved]
  - Dysentery [Recovered/Resolved]
  - Product use in unapproved indication [Unknown]
  - Abdominal pain upper [Recovered/Resolved]

NARRATIVE: CASE EVENT DATE: 20210327
